FAERS Safety Report 11867138 (Version 3)
Quarter: 2016Q2

REPORT INFORMATION
  Report Type: Spontaneous
  Country: US (occurrence: US)
  Receive Date: 20151224
  Receipt Date: 20160602
  Transmission Date: 20160815
  Serious: Yes (Other)
  Sender: FDA-Public Use
  Company Number: US-JNJFOC-20151219275

PATIENT
  Age: 40 Year
  Sex: Female
  Weight: 63.5 kg

DRUGS (4)
  1. REMICADE [Suspect]
     Active Substance: INFLIXIMAB
     Indication: CROHN^S DISEASE
     Route: 042
     Dates: start: 201508
  2. REMICADE [Suspect]
     Active Substance: INFLIXIMAB
     Indication: CROHN^S DISEASE
     Route: 042
     Dates: start: 20150816
  3. REMICADE [Suspect]
     Active Substance: INFLIXIMAB
     Indication: CROHN^S DISEASE
     Route: 042
     Dates: start: 20150810
  4. REMICADE [Suspect]
     Active Substance: INFLIXIMAB
     Indication: CROHN^S DISEASE
     Route: 042
     Dates: start: 20150916, end: 20160111

REACTIONS (30)
  - Rash [Not Recovered/Not Resolved]
  - Chapped lips [Unknown]
  - Vision blurred [Unknown]
  - Oropharyngeal pain [Unknown]
  - Cough [Unknown]
  - Psoriasis [Unknown]
  - Pyrexia [Not Recovered/Not Resolved]
  - Fungal infection [Unknown]
  - Back pain [Unknown]
  - Arthritis [Not Recovered/Not Resolved]
  - Decreased appetite [Not Recovered/Not Resolved]
  - Depression [Unknown]
  - Abnormal loss of weight [Not Recovered/Not Resolved]
  - Sinus congestion [Unknown]
  - Alopecia [Unknown]
  - Onychomycosis [Unknown]
  - Candida infection [Unknown]
  - Fatigue [Not Recovered/Not Resolved]
  - Migraine [Unknown]
  - Rhinorrhoea [Unknown]
  - Feeling abnormal [Not Recovered/Not Resolved]
  - Confusional state [Unknown]
  - Arthralgia [Unknown]
  - Acne [Not Recovered/Not Resolved]
  - Oral herpes [Unknown]
  - Hair texture abnormal [Unknown]
  - Sensitivity of teeth [Unknown]
  - Hepatic enzyme increased [Unknown]
  - Pruritus [Unknown]
  - Onychoclasis [Unknown]

NARRATIVE: CASE EVENT DATE: 201508
